FAERS Safety Report 8059430-1 (Version None)
Quarter: 2012Q1

REPORT INFORMATION
  Report Type: 
  Country: None (occurrence: None)
  Receive Date: 20120120
  Receipt Date: 20120112
  Transmission Date: 20120608
  Serious: Yes (Hospitalization)
  Sender: FDA-Public Use
  Company Number: US-NOVOPROD-342994

PATIENT
  Age: 39 Year
  Sex: Female
  Weight: 64.399 kg

DRUGS (2)
  1. LEVEMIR [Suspect]
     Indication: TYPE 2 DIABETES MELLITUS
     Dosage: 9 U, QD, AT BEDTIME
     Route: 058
     Dates: start: 20070901
  2. NOVOLOG [Suspect]
     Indication: TYPE 2 DIABETES MELLITUS
     Dosage: UNK, TID
     Route: 058
     Dates: start: 20050901

REACTIONS (2)
  - DIABETIC KETOACIDOSIS [None]
  - BRONCHITIS [None]
